FAERS Safety Report 25805405 (Version 1)
Quarter: 2025Q3

REPORT INFORMATION
  Report Type: Spontaneous
  Country: CN (occurrence: CN)
  Receive Date: 20250916
  Receipt Date: 20250916
  Transmission Date: 20251021
  Serious: Yes (Other)
  Sender: BEIGENE
  Company Number: CN-JIANGSU HENGRUI PHARMACEUTICALS CO., LTD.-H2025001205891

PATIENT
  Age: 79 Year
  Weight: 67 kg

DRUGS (7)
  1. TISLELIZUMAB [Suspect]
     Active Substance: TISLELIZUMAB
     Indication: Prostate cancer
  2. TISLELIZUMAB [Suspect]
     Active Substance: TISLELIZUMAB
  3. RIVOCERANIB [Concomitant]
     Active Substance: RIVOCERANIB
     Indication: Prostate cancer
     Dosage: 0.25 GRAM, QD
  4. RIVOCERANIB [Concomitant]
     Active Substance: RIVOCERANIB
     Dosage: 0.25 GRAM, QD
  5. GOSERELIN [Concomitant]
     Active Substance: GOSERELIN
     Indication: Prostate cancer
  6. GOSERELIN [Concomitant]
     Active Substance: GOSERELIN
  7. GOSERELIN [Concomitant]
     Active Substance: GOSERELIN

REACTIONS (3)
  - Interstitial lung disease [Recovering/Resolving]
  - Asthenia [Recovering/Resolving]
  - Drug ineffective for unapproved indication [Unknown]
